FAERS Safety Report 7895425-6 (Version None)
Quarter: 2011Q4

REPORT INFORMATION
  Report Type: 
  Country: None (occurrence: None)
  Receive Date: 20111106
  Receipt Date: 20110826
  Transmission Date: 20120403
  Serious: No
  Sender: FDA-Public Use
  Company Number: US-AMGEN-USASP2011043835

PATIENT
  Sex: Female

DRUGS (3)
  1. HUMIRA [Concomitant]
  2. PREDNISONE [Concomitant]
  3. ENBREL [Suspect]
     Indication: RHEUMATOID ARTHRITIS
     Dosage: 25 MG, QWK
     Dates: start: 19980201, end: 20100101

REACTIONS (4)
  - JOINT STIFFNESS [None]
  - PSYCHOMOTOR HYPERACTIVITY [None]
  - BLOOD GLUCOSE INCREASED [None]
  - JOINT SWELLING [None]
